FAERS Safety Report 9959017 (Version 2)
Quarter: 2014Q1

REPORT INFORMATION
  Report Type: Report from Study
  Country: US (occurrence: US)
  Receive Date: 20140305
  Receipt Date: 20140305
  Transmission Date: 20141002
  Serious: Yes (Other)
  Sender: FDA-Public Use
  Company Number: US-ABBVIE-13P-163-1089583-00

PATIENT
  Age: 27 Year
  Sex: Female
  Weight: 63.56 kg

DRUGS (6)
  1. HUMIRA [Suspect]
     Indication: PSORIASIS
     Route: 058
     Dates: start: 200804, end: 201210
  2. HUMIRA [Suspect]
     Indication: PSORIASIS
     Dosage: LOADING DOSE
     Route: 058
     Dates: start: 20130110, end: 20130110
  3. HUMIRA [Suspect]
     Route: 058
     Dates: start: 2006
  4. HUMIRA [Suspect]
     Dates: start: 2007, end: 200804
  5. TOPICAL CREAMS [Concomitant]
     Indication: PSORIASIS
  6. MEDICATED SHAMPOO [Concomitant]
     Indication: PSORIASIS

REACTIONS (3)
  - Tonsillitis [Recovered/Resolved]
  - Arthralgia [Not Recovered/Not Resolved]
  - Nausea [Recovered/Resolved]
